FAERS Safety Report 6933060-4 (Version None)
Quarter: 2010Q3

REPORT INFORMATION
  Report Type: 
  Country: None (occurrence: None)
  Receive Date: 20100819
  Receipt Date: 20100811
  Transmission Date: 20110219
  Serious: Yes (Hospitalization, Disabling, Other)
  Sender: FDA-Public Use
  Company Number: US-ABBOTT-10P-163-0663876-00

PATIENT
  Sex: Female
  Weight: 81.72 kg

DRUGS (2)
  1. HUMIRA [Suspect]
     Indication: CROHN'S DISEASE
     Route: 058
     Dates: start: 20091201, end: 20100714
  2. HUMIRA [Suspect]
     Indication: COLITIS ULCERATIVE

REACTIONS (20)
  - ASTHMA [None]
  - BLOOD URINE PRESENT [None]
  - CARDIAC FAILURE CONGESTIVE [None]
  - FLUID RETENTION [None]
  - HEADACHE [None]
  - LUPUS-LIKE SYNDROME [None]
  - OCULAR VASCULITIS [None]
  - PHOTOSENSITIVITY REACTION [None]
  - PYREXIA [None]
  - RASH MACULAR [None]
  - RENAL FAILURE [None]
  - TINEA PEDIS [None]
  - TOOTH DISCOLOURATION [None]
  - TOOTH DISORDER [None]
  - TOOTH FRACTURE [None]
  - TOOTH INFECTION [None]
  - TOOTHACHE [None]
  - VASCULITIS [None]
  - VISUAL IMPAIRMENT [None]
  - WEIGHT INCREASED [None]
